FAERS Safety Report 18869860 (Version 1)
Quarter: 2021Q1

REPORT INFORMATION
  Report Type: Other
  Country: FR (occurrence: FR)
  Receive Date: 20210210
  Receipt Date: 20210210
  Transmission Date: 20210420
  Serious: Yes (Other)
  Sender: FDA-Public Use
  Company Number: FR-DENTSPLY-2021SCDP000035

PATIENT
  Age: 1 Day
  Sex: Female
  Weight: .72 kg

DRUGS (1)
  1. PRILOCAINE AND LIDOCAINE [Suspect]
     Active Substance: LIDOCAINE\PRILOCAINE
     Indication: GAIT DISTURBANCE
     Dosage: 1 DOSAGE FORM, TOTAL
     Route: 061
     Dates: start: 20210112, end: 20210112

REACTIONS (3)
  - Acidosis [Recovered/Resolved]
  - Application site burn [Recovered/Resolved]
  - Blood methaemoglobin present [Recovered/Resolved]

NARRATIVE: CASE EVENT DATE: 20210112
